FAERS Safety Report 5375158-0 (Version None)
Quarter: 2007Q2

REPORT INFORMATION
  Report Type: 
  Country: None (occurrence: None)
  Receive Date: 20070629
  Receipt Date: 20060530
  Transmission Date: 20071010
  Serious: No
  Sender: FDA-Public Use
  Company Number: US-ASTRAZENECA-2006UW10432

PATIENT
  Sex: Female

DRUGS (1)
  1. NOLVADEX [Suspect]
     Route: 048

REACTIONS (1)
  - UTERINE PROLAPSE [None]
